FAERS Safety Report 9361282 (Version 2)
Quarter: 2013Q3

REPORT INFORMATION
  Report Type: Spontaneous
  Country: FR (occurrence: FR)
  Receive Date: 20130621
  Receipt Date: 20130718
  Transmission Date: 20140515
  Serious: Yes (Hospitalization, Other)
  Sender: FDA-Public Use
  Company Number: FR-BRISTOL-MYERS SQUIBB COMPANY-19005156

PATIENT
  Age: 2 Year
  Sex: Female
  Weight: 13 kg

DRUGS (11)
  1. ETOPOPHOS [Suspect]
     Indication: EWING^S SARCOMA
     Dosage: 1ST COURSE:29MAR-31MAR13?2ND COURSE:22APR-24APR13?3RD COURSE:15MAY-17MAY13
     Route: 042
     Dates: start: 20130329
  2. HOLOXAN [Suspect]
     Indication: EWING^S SARCOMA
     Dosage: 1ST COURSE:29MAR-31MAR13?2ND COURSE:22APR-24APR13?3RD COURSE:15MAY-17MAY13
     Route: 042
     Dates: start: 20130329
  3. VINCRISTINE SULFATE [Suspect]
     Indication: EWING^S SARCOMA
     Dosage: 1ST COURSE:29MAR-31MAR13?2ND COURSE:22APR-24APR13?3RD COURSE:15MAY-17MAY13
     Route: 042
     Dates: start: 20130329
  4. DOXORUBICIN HCL [Suspect]
     Indication: EWING^S SARCOMA
     Dosage: 1ST COURSE:29MAR-31MAR13?2ND COURSE:22APR-24APR13?3RD COURSE:15MAY-17MAY13
     Route: 042
     Dates: start: 20130329
  5. TAZOCILLINE [Concomitant]
     Route: 042
     Dates: start: 20130523, end: 20130527
  6. GRANOCYTE [Concomitant]
     Dosage: DAILY MOUTH BATH WITH BICARBONATE
     Route: 048
     Dates: start: 20130523, end: 20130528
  7. ELUDRIL [Concomitant]
     Route: 048
  8. BACTRIM [Concomitant]
     Route: 048
  9. ZOPHREN [Concomitant]
  10. DOLIPRANE [Concomitant]
     Dosage: 1DF:1 DOSE FOR 12 KG ORALLY 4 TIMES A DAY IF NEEDED
     Route: 048
  11. CODENFAN [Concomitant]
     Dosage: 4 TIMES A DAY IF NECESSARY
     Route: 048

REACTIONS (3)
  - Febrile bone marrow aplasia [Recovered/Resolved]
  - Palmar-plantar erythrodysaesthesia syndrome [Recovered/Resolved]
  - Off label use [Unknown]
